FAERS Safety Report 4686335-6 (Version None)
Quarter: 2005Q2

REPORT INFORMATION
  Report Type: 
  Country: None (occurrence: None)
  Receive Date: 20050606
  Receipt Date: 20050524
  Transmission Date: 20051028
  Serious: Yes (Other)
  Sender: FDA-Public Use
  Company Number: 2005079238

PATIENT
  Age: 78 Year
  Sex: Female
  Weight: 62.1428 kg

DRUGS (12)
  1. CELEBREX [Suspect]
     Indication: OSTEOARTHRITIS
     Dosage: 400 MG (200 MG 2 IN 1 D) ORAL
     Route: 048
     Dates: end: 20050501
  2. HUMALOG [Concomitant]
  3. LANTUS [Concomitant]
  4. ATACAND HCT (CANDESARTAN CILEXETIL, HYDROCHLOROTHIAZIDE) [Concomitant]
  5. COREG [Concomitant]
  6. LANOXIN [Concomitant]
  7. NORVASC [Concomitant]
  8. DOXEPIN HCL [Concomitant]
  9. PREMARIN [Concomitant]
  10. LEVOXYL [Concomitant]
  11. ADVICOR (LOVASTATIN, NICOTINIC ACID) [Concomitant]
  12. TRICOR [Concomitant]

REACTIONS (4)
  - ARTHRALGIA [None]
  - COLONIC POLYP [None]
  - DISEASE RECURRENCE [None]
  - RECTAL HAEMORRHAGE [None]
